FAERS Safety Report 7965871-0 (Version None)
Quarter: 2011Q4

REPORT INFORMATION
  Report Type: 
  Country: None (occurrence: None)
  Receive Date: 20111208
  Receipt Date: 20111202
  Transmission Date: 20120403
  Serious: Yes (Hospitalization, Disabling)
  Sender: FDA-Public Use
  Company Number: US-GLAXOSMITHKLINE-A0929574A

PATIENT
  Age: 73 Year
  Sex: Male

DRUGS (1)
  1. AVANDIA [Suspect]
     Indication: DIABETES MELLITUS
     Dosage: 4MG PER DAY
     Route: 048
     Dates: start: 20070319, end: 20070619

REACTIONS (5)
  - CARDIOMYOPATHY [None]
  - MYOCARDIAL INFARCTION [None]
  - ATRIAL FIBRILLATION [None]
  - CARDIOVASCULAR DISORDER [None]
  - PAIN IN EXTREMITY [None]
